FAERS Safety Report 16653823 (Version 2)
Quarter: 2019Q3

REPORT INFORMATION
  Report Type: Spontaneous
  Country: BR (occurrence: BR)
  Receive Date: 20190731
  Receipt Date: 20190807
  Transmission Date: 20191004
  Serious: Yes (Hospitalization, Other)
  Sender: FDA-Public Use
  Company Number: BR-PFIZER INC-2019311079

PATIENT
  Age: 51 Year
  Sex: Female
  Weight: 80 kg

DRUGS (3)
  1. LORAX [LORAZEPAM] [Suspect]
     Active Substance: LORAZEPAM
     Indication: ANXIETY
     Dosage: ) 2 MG, DAILY (1 TABLET A DAY)
     Dates: start: 1990, end: 2013
  2. LORAX [LORAZEPAM] [Suspect]
     Active Substance: LORAZEPAM
     Indication: DEPRESSION
     Dosage: 2 TABLETS, DAILY (USING 2 TABLETS A DAY INSTEAD OF 1)
     Dates: start: 2012
  3. LORAX [LORAZEPAM] [Suspect]
     Active Substance: LORAZEPAM
     Indication: INSOMNIA
     Dosage: 1 MG, DAILY (1 TABLET A DAY)
     Dates: start: 2013, end: 2019

REACTIONS (9)
  - Intentional dose omission [Unknown]
  - Off label use [Unknown]
  - Sluggishness [Recovered/Resolved]
  - Product prescribing issue [Unknown]
  - Drug dependence [Not Recovered/Not Resolved]
  - Somnolence [Recovered/Resolved]
  - Intentional product misuse [Unknown]
  - Depression [Not Recovered/Not Resolved]
  - Asthenia [Not Recovered/Not Resolved]

NARRATIVE: CASE EVENT DATE: 1990
